FAERS Safety Report 7991047-7 (Version None)
Quarter: 2011Q4

REPORT INFORMATION
  Report Type: 
  Country: None (occurrence: None)
  Receive Date: 20111219
  Receipt Date: 20111208
  Transmission Date: 20120403
  Serious: Yes (Hospitalization)
  Sender: FDA-Public Use
  Company Number: JP-ROCHE-512966

PATIENT
  Sex: Female

DRUGS (51)
  1. MYCOPHENOLATE MOFETIL (CELLCEPT) [Suspect]
     Route: 048
     Dates: start: 20030203, end: 20030223
  2. MYCOPHENOLATE MOFETIL (CELLCEPT) [Suspect]
     Route: 048
     Dates: start: 20030224, end: 20030420
  3. MYCOPHENOLATE MOFETIL (CELLCEPT) [Suspect]
     Route: 048
     Dates: start: 20030421, end: 20030505
  4. TACROLIMUS [Suspect]
     Indication: PROPHYLAXIS AGAINST TRANSPLANT REJECTION
     Dosage: NOTE: 3MG ~ 6MG
     Route: 048
     Dates: start: 20021016, end: 20021204
  5. TACROLIMUS [Suspect]
     Dosage: NOTE: 1.6MG ~ 4MG
     Route: 048
     Dates: start: 20030101, end: 20031118
  6. TACROLIMUS [Suspect]
     Dosage: NOTE: 4MG ~ 5MG
     Route: 048
  7. METHYLPREDNISOLONE [Suspect]
     Indication: PROPHYLAXIS AGAINST TRANSPLANT REJECTION
     Dosage: NOTE: 3MG ~ 10MG
     Route: 048
     Dates: start: 20021028, end: 20021129
  8. NEO-MINOPHAGEN C [Concomitant]
     Dosage: DRUG REPORTED AS GLYCYRRHIZIN_GLYCINE_CYSTEINE COMBINED DRUG NOTE: 20MG ~ 40MG
     Route: 042
     Dates: start: 20021205, end: 20021216
  9. GENERIC COMPONENT(S) NOT KNOWN [Concomitant]
     Dosage: DRUG REPORTED AS ACDEAM, GENERIC: LYSOZYME HYDROCHLORIDE
     Route: 048
     Dates: start: 20030116, end: 20030224
  10. MYCOPHENOLATE MOFETIL (CELLCEPT) [Suspect]
     Route: 048
     Dates: start: 20060306, end: 20060326
  11. MYCOPHENOLATE MOFETIL (CELLCEPT) [Suspect]
     Route: 048
     Dates: start: 20060327, end: 20060329
  12. MYCOPHENOLATE MOFETIL (CELLCEPT) [Suspect]
     Route: 048
     Dates: start: 20060330, end: 20060330
  13. METHYLPREDNISOLONE [Suspect]
     Dosage: NOTE: 3MG - 4MG
     Route: 048
  14. LAC-B [Concomitant]
     Route: 048
     Dates: start: 20021125, end: 20021204
  15. PERIACTIN [Concomitant]
     Dosage: DRUG REPORTED AS CYPROHEPTADINE HYDROCHLORIDE. NOTE: 3MG ~ 4MG
     Route: 048
     Dates: start: 20030106, end: 20030324
  16. MYCOPHENOLATE MOFETIL (CELLCEPT) [Suspect]
     Route: 048
     Dates: start: 20031021, end: 20031110
  17. MYCOPHENOLATE MOFETIL (CELLCEPT) [Suspect]
     Route: 048
     Dates: start: 20031111, end: 20040826
  18. MYCOPHENOLATE MOFETIL (CELLCEPT) [Suspect]
     Route: 048
     Dates: start: 20060808, end: 20060808
  19. MYCOPHENOLATE MOFETIL (CELLCEPT) [Suspect]
     Route: 048
     Dates: start: 20060824, end: 20060919
  20. ALLOID G [Concomitant]
     Dosage: GENERIC REPORTED AS SODIUM ALGINATE
     Route: 048
     Dates: start: 20021125, end: 20021204
  21. MARZULENE-S [Concomitant]
     Dosage: GENERIC REPORTED AS SODIUM AZULENE SULFONATE_L-GLUTAMINE
     Route: 048
     Dates: start: 20021125, end: 20021204
  22. SOLU-MEDROL [Concomitant]
     Dosage: DRUG REPORTED AS METHYLPREDNISOLONE SODIUM SUCCINATE
     Route: 042
     Dates: start: 20031107, end: 20031126
  23. NEORAL [Concomitant]
     Dosage: NOTE: 20MG ~ 40MG
     Route: 048
  24. MYCOPHENOLATE MOFETIL (CELLCEPT) [Suspect]
     Indication: PROPHYLAXIS AGAINST TRANSPLANT REJECTION
     Route: 048
     Dates: start: 20021127, end: 20021127
  25. MYCOPHENOLATE MOFETIL (CELLCEPT) [Suspect]
     Route: 048
     Dates: start: 20030107, end: 20030202
  26. MYCOPHENOLATE MOFETIL (CELLCEPT) [Suspect]
     Route: 048
     Dates: start: 20070424, end: 20070521
  27. METHYLPREDNISOLONE [Suspect]
     Dosage: NOTE: 2MG ~ 5MG
     Route: 048
     Dates: start: 20021214, end: 20030526
  28. METHYLPREDNISOLONE [Suspect]
     Dosage: NOTE: 10MG ~ 12MG
     Route: 048
  29. FAMOTIDINE [Concomitant]
     Dosage: FAMOTIDINE
     Route: 048
     Dates: start: 20021127, end: 20021204
  30. MYCOPHENOLATE MOFETIL (CELLCEPT) [Suspect]
     Route: 048
     Dates: start: 20030106, end: 20030106
  31. MYCOPHENOLATE MOFETIL (CELLCEPT) [Suspect]
     Route: 048
     Dates: start: 20040827, end: 20060305
  32. MYCOPHENOLATE MOFETIL (CELLCEPT) [Suspect]
     Route: 048
     Dates: start: 20070528, end: 20071125
  33. METHYLPREDNISOLONE [Suspect]
     Dosage: NOTE: 2.6MG ~ 10MG
     Route: 048
  34. SULPERAZON (JAPAN) [Concomitant]
     Route: 042
     Dates: start: 20021127, end: 20021205
  35. MYCOPHENOLATE MOFETIL (CELLCEPT) [Suspect]
     Route: 048
     Dates: start: 20021128, end: 20030105
  36. MYCOPHENOLATE MOFETIL (CELLCEPT) [Suspect]
     Route: 048
     Dates: start: 20060920, end: 20070423
  37. METHYLPREDNISOLONE [Suspect]
     Dosage: NOTE: 2MG ~ 3MG
     Route: 048
     Dates: start: 20030101, end: 20031106
  38. METHYLPREDNISOLONE [Suspect]
     Route: 048
     Dates: start: 20031127, end: 20031127
  39. URSO 250 [Concomitant]
     Route: 048
     Dates: start: 20021125, end: 20031205
  40. NEORAL [Concomitant]
     Dosage: NOTE: 40MG ~ 60MG
     Route: 048
  41. MYCOPHENOLATE MOFETIL (CELLCEPT) [Suspect]
     Route: 048
     Dates: start: 20030506, end: 20030818
  42. MYCOPHENOLATE MOFETIL (CELLCEPT) [Suspect]
     Route: 048
     Dates: start: 20060403, end: 20060403
  43. MYCOPHENOLATE MOFETIL (CELLCEPT) [Suspect]
     Route: 048
     Dates: start: 20070522, end: 20070527
  44. TACROLIMUS [Suspect]
     Dosage: NOTE: 3MG ~ 6MG
     Route: 048
     Dates: start: 20021216, end: 20030526
  45. TACROLIMUS [Suspect]
     Dosage: NOTE: 3MG ~ 5MG
     Route: 048
  46. SOLU-MEDROL [Concomitant]
     Route: 042
     Dates: start: 20060828, end: 20060830
  47. FERROUS CITRATE [Concomitant]
     Route: 048
     Dates: start: 20030203, end: 20030224
  48. MYCOPHENOLATE MOFETIL (CELLCEPT) [Suspect]
     Route: 048
     Dates: start: 20060809, end: 20060823
  49. TACROLIMUS [Suspect]
     Dosage: NOTE: 3.2MG ~ 4MG
     Route: 048
     Dates: start: 20021204, end: 20021213
  50. SUCRALFATE [Concomitant]
     Route: 048
     Dates: start: 20021125, end: 20021204
  51. SOLU-MEDROL [Concomitant]
     Dosage: DRUG REPORTED AS METHYLPREDNISOLONE SODIUM SUCCINATE NOTE: 5MG ~ 270MG
     Route: 042
     Dates: start: 20021129, end: 20021213

REACTIONS (6)
  - WHITE BLOOD CELL COUNT DECREASED [None]
  - SINUSITIS [None]
  - ANTINUCLEAR ANTIBODY INCREASED [None]
  - VARICELLA [None]
  - HEPATIC FUNCTION ABNORMAL [None]
  - ABDOMINAL PAIN [None]
